FAERS Safety Report 9393535 (Version 3)
Quarter: 2013Q3

REPORT INFORMATION
  Report Type: Spontaneous
  Country: IT (occurrence: None)
  Receive Date: 20130705
  Receipt Date: 20130807
  Transmission Date: 20140515
  Serious: Yes (Other)
  Sender: FDA-Public Use
  Company Number: ACO_37150_2013

PATIENT
  Age: 63 Year
  Sex: Female

DRUGS (5)
  1. FAMPYRA [Suspect]
     Indication: MULTIPLE SCLEROSIS
     Route: 048
     Dates: start: 20130617, end: 20130618
  2. LIORESAL (BACLOFEN) [Concomitant]
  3. DAPAROX (PAROXETINE HYDROCHLORIDE) [Concomitant]
  4. MANTADAN (AMANTADINE HYDROCHLORIDE) [Concomitant]
  5. VESIKER (SOLIFENACIN SUCCINATE) [Concomitant]

REACTIONS (1)
  - Tonic convulsion [None]
